FAERS Safety Report 24395140 (Version 1)
Quarter: 2024Q4

REPORT INFORMATION
  Report Type: Report from Study
  Country: US (occurrence: US)
  Receive Date: 20241004
  Receipt Date: 20241004
  Transmission Date: 20250115
  Serious: Yes (Hospitalization, Other)
  Sender: GILEAD
  Company Number: US-GILEAD-2024-0687608

PATIENT
  Age: 50 Year
  Sex: Female

DRUGS (20)
  1. AZTREONAM LYSINE [Suspect]
     Active Substance: AZTREONAM LYSINE
     Indication: Cystic fibrosis
     Dosage: INHALE 1 ML VIA NEBULIZER THREE TIMES DAILY EVERY OTHER MONTH
     Route: 055
     Dates: start: 20131030
  2. AZTREONAM LYSINE [Suspect]
     Active Substance: AZTREONAM LYSINE
     Dosage: 75 MG, TID (INHALE 1 ML VIA NEBULIZER THREE TIMES DAILY EVERY OTHER MONTH)
     Route: 055
     Dates: start: 20150505
  3. TRIKAFTA [Concomitant]
     Active Substance: ELEXACAFTOR\IVACAFTOR\TEZACAFTOR
  4. PULMOZYME [Concomitant]
     Active Substance: DORNASE ALFA
  5. CREON [Concomitant]
     Active Substance: PANCRELIPASE AMYLASE\PANCRELIPASE LIPASE\PANCRELIPASE PROTEASE
  6. MOMETASONE FUROATE [Concomitant]
     Active Substance: MOMETASONE FUROATE
  7. FOSAMAX [Concomitant]
     Active Substance: ALENDRONATE SODIUM
  8. HYDROCHLOROTHIAZIDE [Concomitant]
     Active Substance: HYDROCHLOROTHIAZIDE
  9. IRON [Concomitant]
     Active Substance: IRON
  10. LANTUS [Concomitant]
     Active Substance: INSULIN GLARGINE
  11. LINZESS [Concomitant]
     Active Substance: LINACLOTIDE
  12. LISINOPRIL [Concomitant]
     Active Substance: LISINOPRIL
  13. MIRAPEX [Concomitant]
     Active Substance: PRAMIPEXOLE DIHYDROCHLORIDE
  14. MONTELUKAST [Concomitant]
     Active Substance: MONTELUKAST
  15. NOVOLOG [Concomitant]
     Active Substance: INSULIN ASPART
  16. SODIUM CHLORIDE [Concomitant]
     Active Substance: SODIUM CHLORIDE
  17. SPIRIVA [Concomitant]
     Active Substance: TIOTROPIUM BROMIDE MONOHYDRATE
  18. ZYRTEC [Concomitant]
     Active Substance: CETIRIZINE HYDROCHLORIDE
  19. ULORIC [Concomitant]
     Active Substance: FEBUXOSTAT
  20. VIT D [VITAMIN D NOS] [Concomitant]

REACTIONS (2)
  - Infective pulmonary exacerbation of cystic fibrosis [Unknown]
  - COVID-19 [Unknown]
